FAERS Safety Report 22528981 (Version 1)
Quarter: 2023Q2

REPORT INFORMATION
  Report Type: Spontaneous
  Country: DE (occurrence: DE)
  Receive Date: 20230607
  Receipt Date: 20230607
  Transmission Date: 20230721
  Serious: Yes (Hospitalization, Other)
  Sender: FDA-Public Use
  Company Number: DE-AMGEN-DEUNI2023065878

PATIENT
  Age: 65 Year
  Sex: Female
  Weight: 67 kg

DRUGS (9)
  1. DEXAMETHASONE [Suspect]
     Active Substance: DEXAMETHASONE
     Indication: Product used for unknown indication
     Dosage: 20 MG
     Route: 065
     Dates: start: 20230302, end: 20230523
  2. DARATUMUMAB [Suspect]
     Active Substance: DARATUMUMAB
     Indication: Product used for unknown indication
     Dosage: 1800 MG
     Route: 065
     Dates: start: 20230302, end: 20230323
  3. CARFILZOMIB [Suspect]
     Active Substance: CARFILZOMIB
     Indication: Plasma cell myeloma
     Dosage: 20 MG/M2
     Route: 042
     Dates: start: 20230302, end: 20230303
  4. CARFILZOMIB [Suspect]
     Active Substance: CARFILZOMIB
     Dosage: 56 MG/M2
     Route: 042
     Dates: start: 20230309, end: 20230316
  5. CARFILZOMIB [Suspect]
     Active Substance: CARFILZOMIB
     Dosage: UNK
     Route: 042
     Dates: start: 20230317, end: 20230317
  6. CARFILZOMIB [Suspect]
     Active Substance: CARFILZOMIB
     Dosage: 56 MG/M2
     Route: 042
     Dates: start: 20230330
  7. CARFILZOMIB [Suspect]
     Active Substance: CARFILZOMIB
     Dosage: 56 MG/M2
     Route: 042
     Dates: start: 20230331
  8. CARFILZOMIB [Suspect]
     Active Substance: CARFILZOMIB
     Dosage: 56 MG/M2
     Route: 042
     Dates: start: 20230424
  9. CARFILZOMIB [Suspect]
     Active Substance: CARFILZOMIB
     Dosage: UNK (DOSE REDUCED)
     Route: 042

REACTIONS (3)
  - Anaemia [Recovered/Resolved]
  - Thrombocytopenia [Recovered/Resolved]
  - Leukopenia [Recovered/Resolved]

NARRATIVE: CASE EVENT DATE: 20230405
